FAERS Safety Report 24813770 (Version 1)
Quarter: 2025Q1

REPORT INFORMATION
  Report Type: Spontaneous
  Country: US (occurrence: US)
  Receive Date: 20250107
  Receipt Date: 20250107
  Transmission Date: 20250409
  Serious: Yes (Hospitalization, Other)
  Sender: EPIC PHARM
  Company Number: US-EPICPHARMA-US-2025EPCLIT00002

PATIENT
  Age: 45 Year
  Sex: Male

DRUGS (5)
  1. ISONIAZID [Suspect]
     Active Substance: ISONIAZID
     Indication: Meningitis tuberculous
     Route: 065
  2. RIFAMPIN [Suspect]
     Active Substance: RIFAMPIN
     Indication: Meningitis tuberculous
     Route: 065
  3. ETHAMBUTOL HYDROCHLORIDE [Suspect]
     Active Substance: ETHAMBUTOL HYDROCHLORIDE
     Indication: Meningitis tuberculous
     Route: 065
  4. DEXAMETHASONE [Suspect]
     Active Substance: DEXAMETHASONE
     Indication: Meningitis tuberculous
     Route: 065
  5. LEVOFLOXACIN [Concomitant]
     Active Substance: LEVOFLOXACIN
     Indication: Product used for unknown indication
     Route: 065

REACTIONS (11)
  - Paradoxical drug reaction [Unknown]
  - Condition aggravated [Unknown]
  - Hallucination, visual [Unknown]
  - Vision blurred [Unknown]
  - Central nervous system lesion [Recovering/Resolving]
  - Ependymitis [Unknown]
  - Choroiditis [Unknown]
  - Oedema [Unknown]
  - Lower motor neurone lesion [Unknown]
  - Drug level below therapeutic [Unknown]
  - Product use in unapproved indication [Unknown]
